FAERS Safety Report 15302813 (Version 2)
Quarter: 2018Q3

REPORT INFORMATION
  Report Type: Spontaneous
  Country: IT (occurrence: IT)
  Receive Date: 20180821
  Receipt Date: 20180926
  Transmission Date: 20181010
  Serious: Yes (Other)
  Sender: FDA-Public Use
  Company Number: PHHY2018IT074689

PATIENT
  Age: 35 Year
  Sex: Male

DRUGS (4)
  1. ESCITALOPRAM [Suspect]
     Active Substance: ESCITALOPRAM OXALATE
     Indication: BIPOLAR DISORDER
     Dosage: 20 MG, QD
     Route: 048
     Dates: start: 20171103, end: 20171104
  2. SEROQUEL [Suspect]
     Active Substance: QUETIAPINE FUMARATE
     Indication: BIPOLAR DISORDER
     Dosage: 1 DF, QD  (1 UG/LITRE)
     Route: 048
     Dates: start: 20171103, end: 20171104
  3. SEROQUEL [Suspect]
     Active Substance: QUETIAPINE FUMARATE
     Indication: BIPOLAR DISORDER
     Dosage: 1 ?G/L, QD (1 UG/LITRE)
     Route: 048
     Dates: start: 20171103, end: 20171104
  4. LAMOTRIGINE. [Suspect]
     Active Substance: LAMOTRIGINE
     Indication: BIPOLAR DISORDER
     Dosage: 100 MG, QD
     Route: 048
     Dates: start: 20171103, end: 20171104

REACTIONS (4)
  - Anhedonia [Recovering/Resolving]
  - Apathy [Recovering/Resolving]
  - Abulia [Recovering/Resolving]
  - Asthenia [Recovering/Resolving]

NARRATIVE: CASE EVENT DATE: 20171103
